FAERS Safety Report 6818429-0 (Version None)
Quarter: 2010Q3

REPORT INFORMATION
  Report Type: 
  Country: None (occurrence: None)
  Receive Date: 20100706
  Receipt Date: 20080407
  Transmission Date: 20110219
  Serious: No
  Sender: FDA-Public Use
  Company Number: US-PFIZER INC-2008013619

PATIENT
  Sex: Male
  Weight: 73.48 kg

DRUGS (1)
  1. ZITHROMAX [Suspect]
     Indication: SINUSITIS
     Dosage: ONCE
     Route: 048
     Dates: start: 20080212

REACTIONS (2)
  - DRUG DISPENSING ERROR [None]
  - DRUG INEFFECTIVE [None]
